FAERS Safety Report 8167296-4 (Version None)
Quarter: 2012Q1

REPORT INFORMATION
  Report Type: 
  Country: None (occurrence: None)
  Receive Date: 20120227
  Receipt Date: 20120221
  Transmission Date: 20120608
  Serious: Yes (Other)
  Sender: FDA-Public Use
  Company Number: US-PFIZER INC-2012046719

PATIENT
  Sex: Female

DRUGS (1)
  1. XALATAN [Suspect]
     Dosage: UNK

REACTIONS (10)
  - CROHN'S DISEASE [None]
  - OSTEOARTHRITIS [None]
  - ARTHROPATHY [None]
  - HYPERTENSION [None]
  - BLOOD CHOLESTEROL INCREASED [None]
  - THYROID DISORDER [None]
  - GLAUCOMA [None]
  - GASTROOESOPHAGEAL REFLUX DISEASE [None]
  - RHEUMATOID ARTHRITIS [None]
  - DEPRESSION [None]
